FAERS Safety Report 9327999 (Version 1)
Quarter: 2013Q2

REPORT INFORMATION
  Report Type: Spontaneous
  Country: DE (occurrence: TH)
  Receive Date: 20130604
  Receipt Date: 20130604
  Transmission Date: 20140414
  Serious: Yes (Life-Threatening)
  Sender: FDA-Public Use
  Company Number: TH-FRI-1000045659

PATIENT
  Sex: Male

DRUGS (1)
  1. ROFLUMILAST [Suspect]
     Route: 048

REACTIONS (1)
  - Sepsis [Unknown]
